FAERS Safety Report 4704311-1 (Version None)
Quarter: 2005Q2

REPORT INFORMATION
  Report Type: 
  Country: None (occurrence: None)
  Receive Date: 20050630
  Receipt Date: 20050504
  Transmission Date: 20051028
  Serious: No
  Sender: FDA-Public Use
  Company Number: 2005GB00884

PATIENT
  Age: 15 Year
  Sex: Male

DRUGS (1)
  1. SEROQUEL [Suspect]
     Indication: SCHIZOID PERSONALITY DISORDER
     Route: 048

REACTIONS (2)
  - NEUTROPENIA [None]
  - PHARYNGOLARYNGEAL PAIN [None]
